FAERS Safety Report 25045687 (Version 1)
Quarter: 2025Q1

REPORT INFORMATION
  Report Type: Spontaneous
  Country: US (occurrence: None)
  Receive Date: 20250305
  Receipt Date: 20250305
  Transmission Date: 20250408
  Serious: Yes (Other)
  Sender: FDA-CTU
  Company Number: None

PATIENT
  Age: 31 Year
  Sex: Female
  Weight: 108 kg

DRUGS (1)
  1. NEXPLANON [Suspect]
     Active Substance: ETONOGESTREL
     Indication: Contraception
     Dates: start: 20250212

REACTIONS (3)
  - Treatment failure [None]
  - Complication associated with device [None]
  - Heavy menstrual bleeding [None]

NARRATIVE: CASE EVENT DATE: 20250212
